FAERS Safety Report 5019748-3 (Version None)
Quarter: 2006Q2

REPORT INFORMATION
  Report Type: 
  Country: None (occurrence: None)
  Receive Date: 20060601
  Receipt Date: 20060522
  Transmission Date: 20061013
  Serious: Yes (Other)
  Sender: FDA-Public Use
  Company Number: 2006063602

PATIENT
  Sex: Female

DRUGS (1)
  1. DEPO-PROVERA [Suspect]
     Indication: ILL-DEFINED DISORDER
     Dosage: FIRST INJECTION
     Dates: start: 20051201, end: 20051201

REACTIONS (15)
  - ALOPECIA [None]
  - BREAST DISCHARGE [None]
  - DEPRESSION [None]
  - DIZZINESS [None]
  - GASTRIC DISORDER [None]
  - HAIR DISORDER [None]
  - HEADACHE [None]
  - HYPOTENSION [None]
  - ILL-DEFINED DISORDER [None]
  - LOSS OF LIBIDO [None]
  - NAUSEA [None]
  - OILY SKIN [None]
  - PITUITARY TUMOUR [None]
  - SUICIDE ATTEMPT [None]
  - TACHYCARDIA [None]
